FAERS Safety Report 24537198 (Version 2)
Quarter: 2025Q2

REPORT INFORMATION
  Report Type: Spontaneous
  Country: US (occurrence: US)
  Receive Date: 20241022
  Receipt Date: 20250611
  Transmission Date: 20250717
  Serious: No
  Sender: SANOFI AVENTIS
  Company Number: US-SA-2024SA299840

PATIENT
  Age: 54 Year
  Sex: Female

DRUGS (1)
  1. DUPIXENT [Suspect]
     Active Substance: DUPILUMAB
     Indication: Nasal polyps
     Dosage: 300 MG, QOW
     Route: 058

REACTIONS (8)
  - Nasal congestion [Unknown]
  - Cough [Unknown]
  - Dyspnoea [Unknown]
  - Epistaxis [Unknown]
  - Musculoskeletal stiffness [Unknown]
  - Injection site mass [Unknown]
  - Injection site induration [Unknown]
  - Injection site bruising [Unknown]
